FAERS Safety Report 8917689 (Version 1)
Quarter: 2012Q4

REPORT INFORMATION
  Report Type: 
  Country: US (occurrence: US)
  Receive Date: 20121119
  Receipt Date: 20121119
  Transmission Date: 20130627
  Serious: No
  Sender: FDA-Public Use
  Company Number: US-009507513-1211USA005858

PATIENT
  Age: 32 Year
  Sex: Female
  Weight: 54.42 kg

DRUGS (2)
  1. CLARITIN-D 12 HOUR [Suspect]
     Indication: SEASONAL ALLERGY
     Dosage: UNK UNK, Unknown
     Route: 048
  2. BENADRYL [Concomitant]
     Indication: SEASONAL ALLERGY
     Dosage: UNK, Unknown
     Dates: start: 20120915

REACTIONS (3)
  - Feeling hot [Unknown]
  - Hyperhidrosis [Unknown]
  - Drug effect decreased [Unknown]
